FAERS Safety Report 8221877-8 (Version None)
Quarter: 2012Q1

REPORT INFORMATION
  Report Type: 
  Country: None (occurrence: None)
  Receive Date: 20120320
  Receipt Date: 20120315
  Transmission Date: 20120608
  Serious: Yes (Hospitalization, Other)
  Sender: FDA-Public Use
  Company Number: US-PFIZER INC-2011272958

PATIENT
  Sex: Female

DRUGS (5)
  1. TRAZODONE [Concomitant]
     Indication: INSOMNIA
     Dosage: UNK
     Dates: start: 20080101
  2. CHANTIX [Suspect]
     Indication: SMOKING CESSATION THERAPY
     Dosage: STARTER PACK AND 1MG MAINTENANCE PACK WITH REFILLS
     Dates: start: 20090508, end: 20091101
  3. LORTAB [Concomitant]
     Indication: PAIN
     Dosage: UNK
     Dates: start: 20080101
  4. FOSAMAX [Concomitant]
     Indication: BONE DISORDER
     Dosage: UNK
     Dates: start: 20080101
  5. EFFEXOR XR [Concomitant]
     Indication: DEPRESSION
     Dosage: UNK
     Dates: start: 20050101, end: 20110101

REACTIONS (6)
  - PAIN [None]
  - ARTHRALGIA [None]
  - CONTUSION [None]
  - GAIT DISTURBANCE [None]
  - LOSS OF CONSCIOUSNESS [None]
  - SUICIDAL IDEATION [None]
